FAERS Safety Report 14572372 (Version 3)
Quarter: 2018Q2

REPORT INFORMATION
  Report Type: Report from Study
  Country: ES (occurrence: ES)
  Receive Date: 20180226
  Receipt Date: 20180516
  Transmission Date: 20180711
  Serious: Yes (Death, Hospitalization)
  Sender: FDA-Public Use
  Company Number: ES-LPDUSPRD-20180208

PATIENT
  Age: 71 Year
  Sex: Male
  Weight: 80 kg

DRUGS (9)
  1. RANEXA [Concomitant]
     Active Substance: RANOLAZINE
     Dosage: 1500 MG (750 MG, 1 IN 12 HR)
     Route: 048
     Dates: start: 20170928
  2. LYRICA [Concomitant]
     Active Substance: PREGABALIN
     Dosage: 150 MG
     Route: 065
     Dates: start: 20170217
  3. ATORVASTATIN [Concomitant]
     Active Substance: ATORVASTATIN
     Dosage: 40 MG
     Route: 048
     Dates: start: 20160113
  4. TROMALYT [Concomitant]
     Active Substance: ASPIRIN
     Dosage: 150 MG
     Route: 048
     Dates: start: 20160901
  5. LANTUS [Concomitant]
     Active Substance: INSULIN GLARGINE
     Dosage: 20 IU
     Route: 065
     Dates: start: 20170831
  6. CARVEDILOL. [Concomitant]
     Active Substance: CARVEDILOL
     Dosage: 15 MG (7.5 MG,1 IN 12 HR)
     Route: 048
     Dates: start: 20160727
  7. FERINJECT [Suspect]
     Active Substance: FERRIC CARBOXYMALTOSE
     Dosage: 1000 MG DILUTED IN 0.9% SALINE
     Route: 042
     Dates: start: 20171227, end: 20171227
  8. CORLENTOR [Concomitant]
     Active Substance: IVABRADINE HYDROCHLORIDE
     Dosage: 15 MG (7.5 MG, 1 IN 12 HR)
     Route: 048
     Dates: start: 20160727
  9. MINITRAN [Concomitant]
     Active Substance: NITROGLYCERIN
     Dosage: 15 MG
     Route: 058
     Dates: start: 20151210

REACTIONS (2)
  - Acute pulmonary oedema [Recovered/Resolved]
  - Cardio-respiratory arrest [Fatal]

NARRATIVE: CASE EVENT DATE: 20180124
